FAERS Safety Report 17203411 (Version 1)
Quarter: 2019Q4

REPORT INFORMATION
  Report Type: Spontaneous
  Country: TR (occurrence: TR)
  Receive Date: 20191226
  Receipt Date: 20191226
  Transmission Date: 20200122
  Serious: Yes (Death)
  Sender: FDA-Public Use
  Company Number: TR-PFIZER INC-2019551801

PATIENT
  Age: 49 Year
  Sex: Female

DRUGS (6)
  1. AMPICILLIN [Suspect]
     Active Substance: AMPICILLIN
     Indication: MENINGITIS
     Dosage: UNK
  2. VANCOMYCIN [Suspect]
     Active Substance: VANCOMYCIN
     Indication: MENINGITIS
     Dosage: UNK
  3. MEROPENEM. [Suspect]
     Active Substance: MEROPENEM
     Indication: MENINGITIS
     Dosage: UNK
  4. AMIKACIN. [Suspect]
     Active Substance: AMIKACIN
     Indication: MENINGITIS
     Dosage: UNK
  5. SULFAMETHOXAZOLE AND TRIMETHOPRIM [Suspect]
     Active Substance: SULFAMETHOXAZOLE\TRIMETHOPRIM
     Indication: MENINGITIS
     Dosage: UNK
  6. ACYCLOVIR [ACICLOVIR] [Concomitant]
     Active Substance: ACYCLOVIR
     Indication: PROPHYLAXIS
     Dosage: UNK

REACTIONS (1)
  - Drug ineffective [Fatal]
